FAERS Safety Report 18353068 (Version 1)
Quarter: 2020Q4

REPORT INFORMATION
  Report Type: Spontaneous
  Country: US (occurrence: US)
  Receive Date: 20201006
  Receipt Date: 20201006
  Transmission Date: 20210114
  Serious: No
  Sender: FDA-Public Use
  Company Number: US-ALLERGAN-2033173US

PATIENT
  Sex: Female

DRUGS (1)
  1. LINZESS [Suspect]
     Active Substance: LINACLOTIDE
     Indication: CONSTIPATION
     Dosage: 72 ?G, QD
     Dates: start: 202008

REACTIONS (3)
  - Contraindicated product administered [Unknown]
  - Bedridden [Unknown]
  - Abdominal pain [Unknown]

NARRATIVE: CASE EVENT DATE: 202008
